FAERS Safety Report 9917697 (Version 1)
Quarter: 2014Q1

REPORT INFORMATION
  Report Type: Report from Study
  Country: US (occurrence: US)
  Receive Date: 20140221
  Receipt Date: 20140221
  Transmission Date: 20141002
  Serious: Yes (Other)
  Sender: FDA-Public Use
  Company Number: US-ABBVIE-14P-163-1202762-00

PATIENT
  Age: 35 Year
  Sex: Female
  Weight: 54.48 kg

DRUGS (3)
  1. LUPRON DEPOT [Suspect]
     Indication: ENDOMETRIOSIS
     Route: 030
     Dates: start: 2009, end: 2010
  2. ADVIL [Concomitant]
     Indication: PAIN
     Dosage: UNKNOWN
  3. PERCOCET [Concomitant]
     Indication: PAIN
     Dosage: UNKNOWN

REACTIONS (6)
  - Adhesion [Recovering/Resolving]
  - Haematoma [Recovering/Resolving]
  - Endometriosis [Recovering/Resolving]
  - Pelvic pain [Recovering/Resolving]
  - Menstruation irregular [Unknown]
  - Vaginal haemorrhage [Unknown]
